APPROVED DRUG PRODUCT: ZOLMITRIPTAN
Active Ingredient: ZOLMITRIPTAN
Strength: 2.5MG
Dosage Form/Route: TABLET, ORALLY DISINTEGRATING;ORAL
Application: A204336 | Product #001
Applicant: MACLEODS PHARMACEUTICALS LTD
Approved: Oct 22, 2015 | RLD: No | RS: No | Type: DISCN